FAERS Safety Report 4743625-6 (Version None)
Quarter: 2005Q3

REPORT INFORMATION
  Report Type: 
  Country: None (occurrence: None)
  Receive Date: 20050809
  Receipt Date: 20050728
  Transmission Date: 20060218
  Serious: No
  Sender: FDA-Public Use
  Company Number: ST-2005-008488

PATIENT
  Age: 47 Year
  Sex: Male

DRUGS (3)
  1. OLMETEC [Suspect]
     Indication: HYPERTENSION
     Dosage: 20 MG QD PO
     Route: 048
     Dates: start: 20050530, end: 20050628
  2. NEWTLIDE [Concomitant]
  3. ADALAT [Concomitant]

REACTIONS (3)
  - ANGIONEUROTIC OEDEMA [None]
  - LARYNGEAL OEDEMA [None]
  - PHARYNGOLARYNGEAL ABSCESS [None]
